FAERS Safety Report 9904089 (Version 1)
Quarter: 2014Q1

REPORT INFORMATION
  Report Type: Spontaneous
  Country: US (occurrence: US)
  Receive Date: 20140218
  Receipt Date: 20140218
  Transmission Date: 20141002
  Serious: No
  Sender: FDA-Public Use
  Company Number: US-BIOGENIDEC-2014BI012882

PATIENT
  Sex: Female

DRUGS (9)
  1. TECFIDERA [Suspect]
     Indication: MULTIPLE SCLEROSIS
     Route: 048
     Dates: start: 20131205
  2. VITAMIN B [Concomitant]
  3. VITAMIN D [Concomitant]
  4. HYDROCODONE [Concomitant]
  5. CLONAZEPAM [Concomitant]
  6. AZITHROMYCIN [Concomitant]
  7. GABAPENTIN [Concomitant]
  8. BACLOFEN [Concomitant]
  9. TIZANIDINE [Concomitant]

REACTIONS (5)
  - Migraine [Unknown]
  - Fall [Recovered/Resolved]
  - Upper limb fracture [Unknown]
  - Weight increased [Unknown]
  - Food craving [Unknown]
